FAERS Safety Report 11705879 (Version 1)
Quarter: 2015Q4

REPORT INFORMATION
  Report Type: Spontaneous
  Country: US (occurrence: US)
  Receive Date: 20151106
  Receipt Date: 20151106
  Transmission Date: 20160304
  Serious: Yes (Hospitalization)
  Sender: FDA-Public Use
  Company Number: US-INCYTE CORPORATION-2015IN005678

PATIENT
  Sex: Male
  Weight: 74.83 kg

DRUGS (12)
  1. METOPROLOL [Concomitant]
     Active Substance: METOPROLOL
  2. L THYROXINE SODIUM [Concomitant]
  3. ALLOPURINOL. [Concomitant]
     Active Substance: ALLOPURINOL
  4. TORSEMIDE. [Concomitant]
     Active Substance: TORSEMIDE
  5. ZOCOR [Concomitant]
     Active Substance: SIMVASTATIN
  6. HYDROCODONE/APAP [Concomitant]
     Active Substance: ACETAMINOPHEN\HYDROCODONE BITARTRATE
  7. FOLIC ACID. [Concomitant]
     Active Substance: FOLIC ACID
  8. ASPIRIN. [Concomitant]
     Active Substance: ASPIRIN
  9. JAKAFI [Suspect]
     Active Substance: RUXOLITINIB
     Indication: MYELOFIBROSIS
     Dosage: 15 MG, BID
     Route: 048
     Dates: start: 20150330
  10. MIRTAZAPINE. [Concomitant]
     Active Substance: MIRTAZAPINE
  11. VITAMIN D                          /00107901/ [Concomitant]
     Active Substance: ERGOCALCIFEROL
  12. PREDNISONE. [Concomitant]
     Active Substance: PREDNISONE

REACTIONS (1)
  - Dyspnoea [Unknown]
